FAERS Safety Report 5569877-0 (Version None)
Quarter: 2007Q4

REPORT INFORMATION
  Report Type: 
  Country: None (occurrence: None)
  Receive Date: 20071220
  Receipt Date: 20070122
  Transmission Date: 20080405
  Serious: No
  Sender: FDA-Public Use
  Company Number: US-ABBOTT-07P-163-0354760-00

PATIENT
  Sex: Female
  Weight: 70.37 kg

DRUGS (2)
  1. OMNICEF [Suspect]
     Indication: MIDDLE EAR EFFUSION
     Route: 048
     Dates: start: 20061215, end: 20061225
  2. METHYLPREDNISOLONE [Concomitant]
     Indication: MIDDLE EAR EFFUSION
     Route: 048

REACTIONS (2)
  - DIARRHOEA [None]
  - FAECES DISCOLOURED [None]
